FAERS Safety Report 8732298 (Version 5)
Quarter: 2013Q2

REPORT INFORMATION
  Report Type: Report from Study
  Country: US (occurrence: US)
  Receive Date: 20120820
  Receipt Date: 20130405
  Transmission Date: 20140414
  Serious: Yes (Hospitalization)
  Sender: FDA-Public Use
  Company Number: US-GLAXOSMITHKLINE-A0989590A

PATIENT
  Age: 40 Year
  Sex: Male

DRUGS (31)
  1. PAZOPANIB [Suspect]
     Indication: METASTATIC RENAL CELL CARCINOMA
     Dosage: 800MG PER DAY
     Route: 048
     Dates: start: 20120221
  2. INVESTIGATIONAL DRUG [Suspect]
     Indication: METASTATIC RENAL CELL CARCINOMA
     Dosage: 2MGK THREE TIMES PER WEEK
     Route: 042
     Dates: start: 20120217
  3. ONDANSETRON [Concomitant]
  4. PROMETHAZINE [Concomitant]
  5. DEXTROSE 5% [Concomitant]
  6. HYDROMORPHONE [Concomitant]
  7. VALIUM [Concomitant]
     Dates: start: 20120604
  8. LEVSIN [Concomitant]
     Dates: start: 20120408
  9. ZOFRAN [Concomitant]
     Dates: start: 20110831
  10. PHENERGAN [Concomitant]
     Dates: start: 20110831
  11. CYMBALTA [Concomitant]
     Dates: start: 20110831
  12. PRILOSEC [Concomitant]
  13. BENADRYL [Concomitant]
     Dates: start: 20120419
  14. ATIVAN [Concomitant]
  15. HYDROCODONE + ACETAMINOPHEN [Concomitant]
  16. DIATRIZOATE [Concomitant]
  17. MIRALAX [Concomitant]
     Dates: start: 20120225
  18. DOCUSATE SODIUM [Concomitant]
  19. SENNA [Concomitant]
  20. HYDROCORTISONE [Concomitant]
     Dates: start: 201204
  21. SYNTHROID [Concomitant]
     Dates: start: 201107
  22. TAMSULOSIN [Concomitant]
     Dates: start: 2011
  23. PROTONIX [Concomitant]
     Dates: start: 20110914
  24. SENOKOT [Concomitant]
     Dates: start: 20120301
  25. IMODIUM [Concomitant]
     Dates: start: 20120309
  26. IBUPROFEN [Concomitant]
     Dates: start: 20120313
  27. ATIVAN [Concomitant]
     Dates: start: 20120320
  28. LISINOPRIL [Concomitant]
     Dates: start: 20120403
  29. OXYCODONE [Concomitant]
  30. CLOTRIMAZOLE [Concomitant]
  31. METHYLPHENIDATE [Concomitant]

REACTIONS (2)
  - Arthralgia [Recovering/Resolving]
  - Orthostatic hypotension [Recovering/Resolving]
